FAERS Safety Report 7524470-5 (Version None)
Quarter: 2011Q2

REPORT INFORMATION
  Report Type: 
  Country: None (occurrence: None)
  Receive Date: 20110606
  Receipt Date: 20110523
  Transmission Date: 20111010
  Serious: Yes (Hospitalization)
  Sender: FDA-Public Use
  Company Number: US-JNJFOC-20110510497

PATIENT
  Sex: Male
  Weight: 102.06 kg

DRUGS (3)
  1. REMICADE [Suspect]
     Indication: PSORIATIC ARTHROPATHY
     Route: 042
     Dates: start: 20100701
  2. STEROIDS NOS [Suspect]
     Indication: PSORIATIC ARTHROPATHY
     Route: 048
  3. METHOTREXATE [Suspect]
     Indication: PSORIATIC ARTHROPATHY
     Route: 048
     Dates: start: 20100701

REACTIONS (7)
  - FATIGUE [None]
  - PALPITATIONS [None]
  - ASTHENIA [None]
  - WEIGHT INCREASED [None]
  - DYSPNOEA [None]
  - DIPLOPIA [None]
  - GAIT DISTURBANCE [None]
